FAERS Safety Report 10023784 (Version 2)
Quarter: 2014Q1

REPORT INFORMATION
  Report Type: Spontaneous
  Country: US (occurrence: US)
  Receive Date: 20140320
  Receipt Date: 20140331
  Transmission Date: 20141002
  Serious: No
  Sender: FDA-Public Use
  Company Number: US-009507513-1403USA003659

PATIENT
  Age: 73 Year
  Sex: Female
  Weight: 48.98 kg

DRUGS (4)
  1. OXYTROL FOR WOMEN [Suspect]
     Indication: HYPERTONIC BLADDER
     Dosage: 1 DF, Q4D
     Route: 062
     Dates: start: 20140110, end: 20140224
  2. OXYTROL FOR WOMEN [Suspect]
     Indication: POLLAKIURIA
  3. LISINOPRIL [Concomitant]
     Indication: HYPERTENSION
     Dosage: 10 MG, UNKNOWN
  4. VENTOLIN (ALBUTEROL SULFATE) [Concomitant]
     Indication: CHRONIC OBSTRUCTIVE PULMONARY DISEASE
     Dosage: UNK, UNKNOWN

REACTIONS (5)
  - Blister [Unknown]
  - Pain [Unknown]
  - Burning sensation [Unknown]
  - Pruritus [Recovered/Resolved]
  - Erythema [Unknown]
